FAERS Safety Report 24235950 (Version 1)
Quarter: 2024Q3

REPORT INFORMATION
  Report Type: Spontaneous
  Country: US (occurrence: US)
  Receive Date: 20240822
  Receipt Date: 20240822
  Transmission Date: 20241016
  Serious: No
  Sender: ENDO
  Company Number: US-ENDO PHARMACEUTICALS INC-2024-001769

PATIENT
  Age: 55 Year
  Sex: Male

DRUGS (6)
  1. TESTOPEL [Suspect]
     Active Substance: TESTOSTERONE
     Indication: Blood testosterone decreased
     Dosage: 6 PELLETS, UNKNOWN
     Route: 051
     Dates: start: 20230913
  2. TESTOPEL [Suspect]
     Active Substance: TESTOSTERONE
     Indication: Blood testosterone decreased
     Dosage: 6 PELLETS, UNKNOWN
     Route: 051
     Dates: start: 20230913
  3. TESTOPEL [Suspect]
     Active Substance: TESTOSTERONE
     Indication: Blood testosterone decreased
     Dosage: 6 PELLETS, UNKNOWN
     Route: 051
     Dates: start: 20230913
  4. TESTOPEL [Suspect]
     Active Substance: TESTOSTERONE
     Dosage: 6 PELLETS, UNKNOWN
     Route: 051
     Dates: start: 20231213
  5. TESTOPEL [Suspect]
     Active Substance: TESTOSTERONE
     Dosage: 6 PELLETS, UNKNOWN
     Route: 051
     Dates: start: 20231213
  6. TESTOPEL [Suspect]
     Active Substance: TESTOSTERONE
     Dosage: 6 PELLETS, UNKNOWN
     Route: 051
     Dates: start: 20231213

REACTIONS (1)
  - Treatment delayed [Not Recovered/Not Resolved]

NARRATIVE: CASE EVENT DATE: 20240410
